FAERS Safety Report 10027771 (Version 5)
Quarter: 2015Q1

REPORT INFORMATION
  Report Type: Report from Study
  Country: JP (occurrence: JP)
  Receive Date: 20140321
  Receipt Date: 20150311
  Transmission Date: 20150720
  Serious: Yes (Hospitalization)
  Sender: FDA-Public Use
  Company Number: JP-BAYER-2014-040409

PATIENT
  Age: 59 Year
  Sex: Male
  Weight: 61 kg

DRUGS (25)
  1. RIOCIGUAT (GUANYLATE CYCLASE STIMULATOR) [Suspect]
     Active Substance: RIOCIGUAT
     Indication: PULMONARY ARTERIAL HYPERTENSION
     Dosage: UNK
     Dates: start: 20100720, end: 20100802
  2. RIOCIGUAT (GUANYLATE CYCLASE STIMULATOR) [Suspect]
     Active Substance: RIOCIGUAT
     Indication: PULMONARY ARTERIAL HYPERTENSION
     Dosage: 0.5
     Dates: start: 20100831, end: 20100927
  3. RIOCIGUAT (GUANYLATE CYCLASE STIMULATOR) [Suspect]
     Active Substance: RIOCIGUAT
     Indication: PULMONARY ARTERIAL HYPERTENSION
     Dosage: 0.5
     Dates: start: 20120619, end: 20120910
  4. RIOCIGUAT (GUANYLATE CYCLASE STIMULATOR) [Suspect]
     Active Substance: RIOCIGUAT
     Indication: PULMONARY ARTERIAL HYPERTENSION
     Dosage: 0.5
     Dates: start: 20121218, end: 20130319
  5. RIOCIGUAT (GUANYLATE CYCLASE STIMULATOR) [Suspect]
     Active Substance: RIOCIGUAT
     Indication: PULMONARY ARTERIAL HYPERTENSION
     Dosage: 1
     Dates: start: 20130903, end: 20131209
  6. RIOCIGUAT (GUANYLATE CYCLASE STIMULATOR) [Suspect]
     Active Substance: RIOCIGUAT
     Indication: PULMONARY ARTERIAL HYPERTENSION
     Dosage: 1
     Dates: start: 20140311, end: 20140603
  7. RIOCIGUAT (GUANYLATE CYCLASE STIMULATOR) [Suspect]
     Active Substance: RIOCIGUAT
     Indication: PULMONARY ARTERIAL HYPERTENSION
     Dosage: UNK
     Dates: start: 20100803, end: 20100816
  8. RIOCIGUAT (GUANYLATE CYCLASE STIMULATOR) [Suspect]
     Active Substance: RIOCIGUAT
     Indication: PULMONARY ARTERIAL HYPERTENSION
     Dosage: 1
     Dates: start: 20131210, end: 20140310
  9. RIOCIGUAT (GUANYLATE CYCLASE STIMULATOR) [Suspect]
     Active Substance: RIOCIGUAT
     Indication: PULMONARY ARTERIAL HYPERTENSION
     Dosage: 1.5
     Dates: start: 20140909, end: 20141201
  10. RIOCIGUAT (GUANYLATE CYCLASE STIMULATOR) [Suspect]
     Active Substance: RIOCIGUAT
     Indication: PULMONARY ARTERIAL HYPERTENSION
     Dosage: 2
     Dates: start: 20150108
  11. RIOCIGUAT (GUANYLATE CYCLASE STIMULATOR) [Suspect]
     Active Substance: RIOCIGUAT
     Indication: PULMONARY ARTERIAL HYPERTENSION
     Dosage: 0.5
     Dates: start: 20120313, end: 20120618
  12. RIOCIGUAT (GUANYLATE CYCLASE STIMULATOR) [Suspect]
     Active Substance: RIOCIGUAT
     Indication: PULMONARY ARTERIAL HYPERTENSION
     Dosage: 1
     Dates: start: 20130618, end: 20130902
  13. RIOCIGUAT (GUANYLATE CYCLASE STIMULATOR) [Suspect]
     Active Substance: RIOCIGUAT
     Indication: PULMONARY ARTERIAL HYPERTENSION
     Dosage: 1.5
     Dates: start: 20141202, end: 20150107
  14. RIOCIGUAT (GUANYLATE CYCLASE STIMULATOR) [Suspect]
     Active Substance: RIOCIGUAT
     Indication: PULMONARY ARTERIAL HYPERTENSION
     Dosage: UNK
     Dates: start: 20100817, end: 20100830
  15. RIOCIGUAT (GUANYLATE CYCLASE STIMULATOR) [Suspect]
     Active Substance: RIOCIGUAT
     Indication: PULMONARY ARTERIAL HYPERTENSION
     Dosage: 0.5
     Dates: start: 20101228, end: 20110314
  16. RIOCIGUAT (GUANYLATE CYCLASE STIMULATOR) [Suspect]
     Active Substance: RIOCIGUAT
     Indication: PULMONARY ARTERIAL HYPERTENSION
     Dosage: 0.5
     Dates: start: 20110315, end: 20110613
  17. RIOCIGUAT (GUANYLATE CYCLASE STIMULATOR) [Suspect]
     Active Substance: RIOCIGUAT
     Indication: PULMONARY ARTERIAL HYPERTENSION
     Dosage: 0.5
     Dates: start: 20111213, end: 20120312
  18. RIOCIGUAT (GUANYLATE CYCLASE STIMULATOR) [Suspect]
     Active Substance: RIOCIGUAT
     Indication: PULMONARY ARTERIAL HYPERTENSION
     Dosage: 1.5
     Dates: start: 20140715, end: 20140908
  19. RIOCIGUAT (GUANYLATE CYCLASE STIMULATOR) [Suspect]
     Active Substance: RIOCIGUAT
     Indication: PULMONARY ARTERIAL HYPERTENSION
     Dosage: UNK
     Dates: start: 20100706, end: 20100719
  20. RIOCIGUAT (GUANYLATE CYCLASE STIMULATOR) [Suspect]
     Active Substance: RIOCIGUAT
     Indication: PULMONARY ARTERIAL HYPERTENSION
     Dosage: 0.5
     Dates: start: 20100928, end: 20101227
  21. RIOCIGUAT (GUANYLATE CYCLASE STIMULATOR) [Suspect]
     Active Substance: RIOCIGUAT
     Indication: PULMONARY ARTERIAL HYPERTENSION
     Dosage: 0.5
     Dates: start: 20110614, end: 20110912
  22. RIOCIGUAT (GUANYLATE CYCLASE STIMULATOR) [Suspect]
     Active Substance: RIOCIGUAT
     Indication: PULMONARY ARTERIAL HYPERTENSION
     Dosage: 0.5
     Dates: start: 20120911, end: 20121217
  23. RIOCIGUAT (GUANYLATE CYCLASE STIMULATOR) [Suspect]
     Active Substance: RIOCIGUAT
     Indication: PULMONARY ARTERIAL HYPERTENSION
     Dosage: 0.5
     Dates: start: 20130319, end: 20130617
  24. RIOCIGUAT (GUANYLATE CYCLASE STIMULATOR) [Suspect]
     Active Substance: RIOCIGUAT
     Indication: PULMONARY ARTERIAL HYPERTENSION
     Dosage: 1.5
     Dates: start: 20140604, end: 20140715
  25. SPIRONOLACTONE. [Concomitant]
     Active Substance: SPIRONOLACTONE
     Indication: DYSURIA
     Dosage: DAILY DOSE 25 MG
     Dates: start: 20140319

REACTIONS (1)
  - Cardiac failure [Recovered/Resolved]

NARRATIVE: CASE EVENT DATE: 20140313
